FAERS Safety Report 17898825 (Version 2)
Quarter: 2020Q2

REPORT INFORMATION
  Report Type: Report from Study
  Country: IL (occurrence: IL)
  Receive Date: 20200615
  Receipt Date: 20200625
  Transmission Date: 20200714
  Serious: Yes (Death, Hospitalization, Other)
  Sender: FDA-Public Use
  Company Number: IL-BAYER-2020-047745

PATIENT
  Age: 47 Year
  Sex: Male

DRUGS (15)
  1. TAXOTERE [Concomitant]
     Active Substance: DOCETAXEL
     Dosage: UNK
  2. ACAMOL [NIMESULIDE] [Concomitant]
     Dosage: UNK
  3. XOFIGO [Suspect]
     Active Substance: RADIUM RA-223 DICHLORIDE
     Indication: LUNG CANCER METASTATIC
     Dosage: UNK
     Dates: start: 20200521, end: 20200521
  4. FOLIC ACID. [Concomitant]
     Active Substance: FOLIC ACID
     Dosage: UNK
  5. VITA CAL+D [Concomitant]
     Dosage: UNK
  6. PERCOCET [OXYCODONE HYDROCHLORIDE;OXYCODONE TEREPHTHALATE;PARACETA [Concomitant]
     Dosage: UNK
  7. TARGIN [Concomitant]
     Active Substance: NALOXONE HYDROCHLORIDE\OXYCODONE HYDROCHLORIDE
     Dosage: UNK
  8. XOFIGO [Suspect]
     Active Substance: RADIUM RA-223 DICHLORIDE
     Indication: LUNG CANCER METASTATIC
     Dosage: UNK
     Dates: start: 20200316, end: 20200316
  9. ELTROXIN [Concomitant]
     Active Substance: LEVOTHYROXINE
     Dosage: UNK
  10. ALLORIL [Concomitant]
     Active Substance: ALLOPURINOL
     Dosage: UNK
  11. FENTANYL TRANSDERMAL SYSTEM [Concomitant]
     Active Substance: FENTANYL
  12. OXALIPLATIN. [Concomitant]
     Active Substance: OXALIPLATIN
  13. OPTALGIN [Concomitant]
     Active Substance: METAMIZOLE
     Dosage: UNK
  14. XOFIGO [Suspect]
     Active Substance: RADIUM RA-223 DICHLORIDE
     Indication: METASTASES TO BONE
     Dosage: UNK
     Dates: start: 20200423, end: 20200423
  15. AVASTIN [Concomitant]
     Active Substance: BEVACIZUMAB
     Dosage: UNK

REACTIONS (10)
  - Product use in unapproved indication [None]
  - Vomiting [Recovering/Resolving]
  - Off label use [None]
  - Hyponatraemia [Recovering/Resolving]
  - General physical health deterioration [Fatal]
  - Headache [Recovering/Resolving]
  - Hospitalisation [None]
  - Blood count abnormal [None]
  - Nausea [Recovering/Resolving]
  - Asthenia [Recovering/Resolving]

NARRATIVE: CASE EVENT DATE: 2020
